FAERS Safety Report 20150278 (Version 1)
Quarter: 2021Q4

REPORT INFORMATION
  Report Type: Spontaneous
  Country: GB (occurrence: GB)
  Receive Date: 20211206
  Receipt Date: 20211206
  Transmission Date: 20220303
  Serious: Yes (Other)
  Sender: FDA-Public Use
  Company Number: GB-ABBVIE-21K-167-4182675-00

PATIENT
  Age: 84 Year
  Sex: Male

DRUGS (3)
  1. EPILIM [Suspect]
     Active Substance: VALPROATE SODIUM
     Indication: Seizure
     Route: 065
  2. EPILIM [Suspect]
     Active Substance: VALPROATE SODIUM
     Dosage: DOSE 800 MG SPLITS IN TO TWO DOSES.
     Route: 065
  3. EPILIM [Suspect]
     Active Substance: VALPROATE SODIUM
     Route: 065

REACTIONS (3)
  - Mental disorder [Unknown]
  - Inappropriate schedule of product administration [Unknown]
  - Treatment noncompliance [Unknown]
